FAERS Safety Report 20838494 (Version 1)
Quarter: 2022Q2

REPORT INFORMATION
  Report Type: Spontaneous
  Country: PS (occurrence: PS)
  Receive Date: 20220517
  Receipt Date: 20220517
  Transmission Date: 20220721
  Serious: Yes (Life-Threatening, Hospitalization)
  Sender: FDA-Public Use
  Company Number: PS-MLMSERVICE-20220505-3542151-2

PATIENT
  Age: 14 Year
  Sex: Male

DRUGS (2)
  1. ENALAPRIL [Suspect]
     Active Substance: ENALAPRIL
     Indication: Product used for unknown indication
     Dosage: 20 TABLETS OF 10 MG
     Route: 065
  2. CARBAMAZEPINE [Suspect]
     Active Substance: CARBAMAZEPINE
     Indication: Product used for unknown indication
     Dosage: MORE THAN 50 TABLETS OF 200 MG CONTROLLED-RELEASE
     Route: 048

REACTIONS (1)
  - Suicide attempt [Unknown]
